FAERS Safety Report 9289443 (Version 1)
Quarter: 2013Q2

REPORT INFORMATION
  Report Type: Spontaneous
  Country: US (occurrence: US)
  Receive Date: 20130514
  Receipt Date: 20130514
  Transmission Date: 20140414
  Serious: No
  Sender: FDA-Public Use
  Company Number: US-PFIZER INC-2013143671

PATIENT
  Age: 74 Year
  Sex: Female

DRUGS (22)
  1. DETROL [Suspect]
     Dosage: UNK
  2. ARTHROTEC [Suspect]
     Dosage: UNK
  3. MORPHINE SULFATE [Suspect]
     Dosage: UNK
  4. NEOSPORIN [Suspect]
     Dosage: UNK
  5. PREDNISONE [Suspect]
     Dosage: UNK
  6. PROMETHAZINE HCL [Suspect]
     Dosage: UNK
  7. TIGAN [Suspect]
     Dosage: UNK
  8. CLONAZEPAM [Suspect]
     Dosage: UNK
  9. FENTANYL [Suspect]
     Dosage: UNK
  10. LEVAQUIN [Suspect]
     Dosage: UNK
  11. COMPAZINE [Suspect]
     Dosage: UNK
  12. ZOFRAN [Suspect]
     Dosage: UNK
  13. TRIAVIL [Suspect]
     Dosage: UNK
  14. QUININE [Suspect]
     Dosage: UNK
  15. VALIUM [Suspect]
     Dosage: UNK
  16. FURADANTIN [Suspect]
     Dosage: UNK
  17. PERCODAN [Suspect]
     Dosage: UNK
  18. BENADRYL [Suspect]
     Dosage: UNK
  19. TRANSDERM-SCOP [Suspect]
     Dosage: UNK
  20. TALWIN [Suspect]
     Dosage: UNK
  21. DILAUDID [Suspect]
     Dosage: UNK
  22. OXYCONTIN [Suspect]
     Dosage: UNK

REACTIONS (1)
  - Drug hypersensitivity [Unknown]
